FAERS Safety Report 6382386-4 (Version None)
Quarter: 2009Q3

REPORT INFORMATION
  Report Type: 
  Country: None (occurrence: None)
  Receive Date: 20090930
  Receipt Date: 20090916
  Transmission Date: 20100115
  Serious: Yes (Other)
  Sender: FDA-Public Use
  Company Number: JP-PFIZER INC-2009258508

PATIENT

DRUGS (1)
  1. SOLU-CORTEF [Suspect]
     Route: 042

REACTIONS (1)
  - SHOCK [None]
